FAERS Safety Report 10434505 (Version 2)
Quarter: 2014Q4

REPORT INFORMATION
  Report Type: Spontaneous
  Country: DE (occurrence: DE)
  Receive Date: 20140905
  Receipt Date: 20141002
  Transmission Date: 20150528
  Serious: Yes (Hospitalization, Other)
  Sender: FDA-Public Use
  Company Number: DE-MERCK-1408DEU016641

PATIENT
  Age: 42 Year
  Sex: Female
  Weight: 65 kg

DRUGS (8)
  1. TYSABRI [Suspect]
     Active Substance: NATALIZUMAB
     Indication: MULTIPLE SCLEROSIS
     Dosage: 300 MG, QW
     Route: 042
     Dates: start: 2008, end: 20121206
  2. FAMPYRA [Suspect]
     Active Substance: DALFAMPRIDINE
     Indication: MULTIPLE SCLEROSIS
     Dosage: 10 MG/D, 0-3.1 GESTATIONAL WEEK
     Route: 048
     Dates: start: 20121118, end: 20131210
  3. GABAPENTIN. [Suspect]
     Active Substance: GABAPENTIN
     Indication: MULTIPLE SCLEROSIS
     Dosage: 3200 MG/D, UNTIL GESTATIONAL WEEK 3+1
     Route: 048
     Dates: start: 20121118, end: 20121210
  4. GABAPENTIN. [Suspect]
     Active Substance: GABAPENTIN
     Dosage: 1200 MG/D, FROM GESTATIONAL WEEK 14 + 2 DAYS UNTIL DELIVERY
     Route: 048
     Dates: start: 20130226, end: 20130628
  5. VITAVERLAN [Concomitant]
     Indication: PROPHYLAXIS OF NEURAL TUBE DEFECT
     Dosage: 0.4 MG/D, 8.4-12.4 GESTATIONAL WEEK
     Route: 048
     Dates: start: 20130117, end: 20130214
  6. ASS 100 [Concomitant]
     Active Substance: ASPIRIN
     Indication: THROMBOSIS PROPHYLAXIS
     Dosage: 100 MG/D, 20.5-31.5 GESTATIONAL WEEK
     Route: 048
     Dates: start: 20130412, end: 20130628
  7. REMERGIL [Suspect]
     Active Substance: MIRTAZAPINE
     Indication: DEPRESSION
     Dosage: 30 MG/D, 14.2-31.5 GESTATIONAL WEEK
     Route: 048
     Dates: start: 20130226, end: 20130628
  8. CLEXANE (ENOXAPARIN SODIUM) [Concomitant]
     Active Substance: ENOXAPARIN SODIUM
     Indication: THROMBOSIS
     Dosage: 40 MG/D, 0-31.5 GESTATIONAL WEEK
     Route: 058
     Dates: start: 20121118, end: 20130628

REACTIONS (4)
  - Caesarean section [Unknown]
  - Exposure during pregnancy [Recovered/Resolved]
  - Investigation [Unknown]
  - Premature labour [Recovered/Resolved]

NARRATIVE: CASE EVENT DATE: 201305
